FAERS Safety Report 17687085 (Version 2)
Quarter: 2020Q2

REPORT INFORMATION
  Report Type: Report from Study
  Country: None (occurrence: CA)
  Receive Date: 20200421
  Receipt Date: 20200514
  Transmission Date: 20200714
  Serious: Yes (Hospitalization, Other)
  Sender: FDA-Public Use
  Company Number: CA-ABBVIE-20K-028-3369979-00

PATIENT
  Sex: Female

DRUGS (1)
  1. HUMIRA [Suspect]
     Active Substance: ADALIMUMAB
     Indication: CROHN^S DISEASE
     Route: 058
     Dates: start: 20190322

REACTIONS (7)
  - Stoma creation [Unknown]
  - Post procedural complication [Recovered/Resolved]
  - Gastrointestinal disorder [Recovering/Resolving]
  - Arrhythmia [Not Recovered/Not Resolved]
  - Gastrointestinal neoplasm [Recovering/Resolving]
  - Pulmonary embolism [Not Recovered/Not Resolved]
  - Memory impairment [Not Recovered/Not Resolved]

NARRATIVE: CASE EVENT DATE: 2020
